FAERS Safety Report 23334875 (Version 1)
Quarter: 2023Q4

REPORT INFORMATION
  Report Type: Other
  Country: US (occurrence: US)
  Receive Date: 20231224
  Receipt Date: 20231224
  Transmission Date: 20240109
  Serious: No
  Sender: FDA-Public Use
  Company Number: US-TRAVERE-2023TVT00853

PATIENT
  Age: 21 Year
  Sex: Male

DRUGS (1)
  1. FILSPARI [Suspect]
     Active Substance: SPARSENTAN
     Indication: Nephritic syndrome
     Route: 048
     Dates: start: 202309

REACTIONS (3)
  - Therapeutic product effect decreased [Unknown]
  - Vomiting [Unknown]
  - Product use in unapproved indication [Unknown]
